FAERS Safety Report 5390171-5 (Version None)
Quarter: 2007Q3

REPORT INFORMATION
  Report Type: 
  Country: None (occurrence: None)
  Receive Date: 20070716
  Receipt Date: 20070716
  Transmission Date: 20080115
  Serious: No
  Sender: FDA-Public Use
  Company Number: None

PATIENT
  Age: 60 Year
  Sex: Female
  Weight: 149.687 kg

DRUGS (1)
  1. AVANDIA [Suspect]
     Indication: DIABETES MELLITUS
     Dosage: 1/2 PILL DAILY  PO
     Route: 048
     Dates: start: 20011117, end: 20070605

REACTIONS (3)
  - CARDIAC FAILURE CONGESTIVE [None]
  - NASOPHARYNGITIS [None]
  - OEDEMA [None]
